FAERS Safety Report 15442694 (Version 2)
Quarter: 2018Q4

REPORT INFORMATION
  Report Type: Report from Study
  Country: JP (occurrence: JP)
  Receive Date: 20180928
  Receipt Date: 20181010
  Transmission Date: 20190204
  Serious: No
  Sender: FDA-Public Use
  Company Number: JP-EISAI MEDICAL RESEARCH-EC-2018-045618

PATIENT
  Age: 64 Year
  Sex: Male
  Weight: 58 kg

DRUGS (13)
  1. TAMSULOSIN HYDROCHLORIDE. [Concomitant]
     Active Substance: TAMSULOSIN HYDROCHLORIDE
  2. BROTIZOLAM [Concomitant]
     Active Substance: BROTIZOLAM
  3. PERAMPANEL [Suspect]
     Active Substance: PERAMPANEL
     Indication: AMYOTROPHIC LATERAL SCLEROSIS
     Route: 048
     Dates: start: 20180409, end: 20180415
  4. PERAMPANEL [Suspect]
     Active Substance: PERAMPANEL
     Route: 048
     Dates: start: 20180604
  5. BERIZYM [Concomitant]
     Active Substance: CELLULASE\DIASTASE\LIPASE
  6. NITRAZEN [Concomitant]
  7. PERAMPANEL [Suspect]
     Active Substance: PERAMPANEL
     Route: 048
     Dates: start: 20180416, end: 20180422
  8. PERAMPANEL [Suspect]
     Active Substance: PERAMPANEL
     Route: 048
     Dates: start: 20180423, end: 20180430
  9. SUMILU STICK [Concomitant]
  10. LOCOID [Concomitant]
     Active Substance: HYDROCORTISONE BUTYRATE
  11. ANTEBATE [Concomitant]
     Active Substance: BETAMETHASONE DIPROPIONATE
  12. RILUTEK [Concomitant]
     Active Substance: RILUZOLE
  13. PERAMPANEL [Suspect]
     Active Substance: PERAMPANEL
     Route: 048
     Dates: start: 20180501, end: 20180603

REACTIONS (1)
  - Prostatic mass [Not Recovered/Not Resolved]

NARRATIVE: CASE EVENT DATE: 20180730
